FAERS Safety Report 10379491 (Version 1)
Quarter: 2014Q3

REPORT INFORMATION
  Report Type: Spontaneous
  Country: US (occurrence: None)
  Receive Date: 20140808
  Receipt Date: 20140808
  Transmission Date: 20150326
  Serious: Yes (Hospitalization)
  Sender: FDA-Public Use
  Company Number: US-H14001-14-00334

PATIENT
  Age: 65 Year
  Sex: Female

DRUGS (2)
  1. LEVOTHYROXINE [Concomitant]
     Active Substance: LEVOTHYROXINE
  2. ISONIAZID. [Suspect]
     Active Substance: ISONIAZID
     Indication: LATENT TUBERCULOSIS

REACTIONS (15)
  - Hepatotoxicity [None]
  - Continuous haemodiafiltration [None]
  - Fluid overload [None]
  - Encephalopathy [None]
  - Abdominal compartment syndrome [None]
  - Chronic hepatitis [None]
  - Hypotension [None]
  - Peritonitis bacterial [None]
  - Hepatic failure [None]
  - Ascites [None]
  - Renal failure [None]
  - Acidosis [None]
  - International normalised ratio increased [None]
  - Hepatic necrosis [None]
  - Liver transplant [None]
